FAERS Safety Report 4554233-4 (Version None)
Quarter: 2004Q4

REPORT INFORMATION
  Report Type: 
  Country: None (occurrence: None)
  Receive Date: 20041230
  Receipt Date: 20040707
  Transmission Date: 20050328
  Serious: Yes (Hospitalization)
  Sender: FDA-Public Use
  Company Number: 04-07-0994

PATIENT
  Age: 30 Year
  Sex: Male
  Weight: 88.905 kg

DRUGS (5)
  1. CLOZAPINE [Suspect]
     Indication: SCHIZOPHRENIA, PARANOID TYPE
     Dosage: 50-350MG QD ORAL
     Route: 048
     Dates: start: 20040427, end: 20040622
  2. PAXIL CR [Concomitant]
  3. DEPAKOTE [Concomitant]
  4. HALDOL [Concomitant]
  5. DESMOPRESSIN NASAL SOLUTION [Concomitant]

REACTIONS (2)
  - LEUKOPENIA [None]
  - NEUTROPENIA [None]
